FAERS Safety Report 16286326 (Version 1)
Quarter: 2019Q2

REPORT INFORMATION
  Report Type: Spontaneous
  Country: CH (occurrence: CH)
  Receive Date: 20190508
  Receipt Date: 20190508
  Transmission Date: 20190711
  Serious: Yes (Hospitalization, Disabling)
  Sender: FDA-Public Use
  Company Number: CH-ASTRAZENECA-2019SE66870

PATIENT
  Age: 60 Year
  Sex: Male
  Weight: 108 kg

DRUGS (8)
  1. XARELTO [Concomitant]
     Active Substance: RIVAROXABAN
     Dosage: TRAITEMENT HABITUEL
     Route: 048
  2. METFORMIN [Concomitant]
     Active Substance: METFORMIN HYDROCHLORIDE
     Dosage: TRAITEMENT HABITUEL
     Route: 048
  3. INEGY [Concomitant]
     Active Substance: EZETIMIBE\SIMVASTATIN
     Dosage: TRAITEMENT HABITUEL (EZ???TIMIBE 10 MG / SIMVASTATINE 10 MG)
     Route: 048
  4. INSULATARD HM [Concomitant]
     Active Substance: INSULIN HUMAN
     Dosage: TRAITEMENT HABITUEL, 40 UL-0-45UL SC
     Route: 058
  5. LISINOPRIL. [Concomitant]
     Active Substance: LISINOPRIL
     Dosage: TRAITEMENT HABITUEL
     Route: 048
  6. TORASEMIDE [Concomitant]
     Active Substance: TORSEMIDE
     Dosage: TRAITEMENT HABITUEL
     Route: 048
  7. FORXIGA [Suspect]
     Active Substance: DAPAGLIFLOZIN
     Indication: TYPE 2 DIABETES MELLITUS
     Route: 048
     Dates: start: 201711, end: 20190402
  8. ADALAT [Concomitant]
     Active Substance: NIFEDIPINE
     Dosage: TRAITEMENT HABITUEL
     Route: 048

REACTIONS (2)
  - Toe amputation [Not Recovered/Not Resolved]
  - Foot amputation [Not Recovered/Not Resolved]

NARRATIVE: CASE EVENT DATE: 201806
